FAERS Safety Report 16201672 (Version 1)
Quarter: 2019Q2

REPORT INFORMATION
  Report Type: Spontaneous
  Country: US (occurrence: US)
  Receive Date: 20190415
  Receipt Date: 20190415
  Transmission Date: 20190711
  Serious: No
  Sender: FDA-Public Use
  Company Number: None

PATIENT
  Age: 42 Year
  Sex: Male
  Weight: 127.8 kg

DRUGS (1)
  1. ALBUTEROL. [Suspect]
     Active Substance: ALBUTEROL
     Indication: ASTHMA
     Route: 055

REACTIONS (2)
  - Laryngitis [None]
  - Throat irritation [None]

NARRATIVE: CASE EVENT DATE: 20131028
